FAERS Safety Report 5062662-8 (Version None)
Quarter: 2006Q3

REPORT INFORMATION
  Report Type: 
  Country: None (occurrence: None)
  Receive Date: 20060724
  Receipt Date: 20060724
  Transmission Date: 20061208
  Serious: Yes (Life-Threatening, Hospitalization, Other)
  Sender: FDA-Public Use
  Company Number: None

PATIENT
  Age: 22 Year
  Sex: Male
  Weight: 54.8852 kg

DRUGS (2)
  1. REMICADE [Suspect]
     Indication: JUVENILE ARTHRITIS
     Dosage: 5 MG/KG EVERY 2 MONTHS IV
     Route: 042
     Dates: start: 20020429, end: 20060620
  2. METHOTREXATE [Suspect]
     Indication: JUVENILE ARTHRITIS
     Dosage: 2.5-15 MG OVER THE YEARS WEEKLY PO
     Route: 048
     Dates: start: 20020429, end: 20050218

REACTIONS (4)
  - BACK PAIN [None]
  - METASTATIC NEOPLASM [None]
  - SPINAL COMPRESSION FRACTURE [None]
  - SYSTEMIC MASTOCYTOSIS [None]
